FAERS Safety Report 19994418 (Version 3)
Quarter: 2022Q1

REPORT INFORMATION
  Report Type: Spontaneous
  Country: US (occurrence: US)
  Receive Date: 20211026
  Receipt Date: 20220120
  Transmission Date: 20220424
  Serious: No
  Sender: FDA-Public Use
  Company Number: US-BRISTOL-MYERS SQUIBB COMPANY-BMS-2021-111516

PATIENT
  Age: 71 Year
  Sex: Female

DRUGS (4)
  1. ORENCIA [Suspect]
     Active Substance: ABATACEPT
     Indication: Rheumatoid arthritis
     Dosage: 125 MILLIGRAM, QWK
     Route: 058
     Dates: start: 201510
  2. ORENCIA [Suspect]
     Active Substance: ABATACEPT
     Indication: Rheumatoid arthritis
     Dosage: 125 MILLIGRAM, QWK
     Route: 058
     Dates: start: 201510
  3. ORENCIA [Suspect]
     Active Substance: ABATACEPT
     Dosage: 125 MG/ML, ONCE WEEKLY
     Route: 058
     Dates: start: 20151001
  4. ORENCIA [Suspect]
     Active Substance: ABATACEPT
     Dosage: 125 MG/ML, ONCE WEEKLY
     Route: 058
     Dates: start: 20151001

REACTIONS (4)
  - Arthralgia [Unknown]
  - Joint swelling [Unknown]
  - Movement disorder [Unknown]
  - Peripheral swelling [Unknown]
